FAERS Safety Report 6231928-8 (Version None)
Quarter: 2009Q2

REPORT INFORMATION
  Report Type: 
  Country: None (occurrence: None)
  Receive Date: 20090616
  Receipt Date: 20090424
  Transmission Date: 20091009
  Serious: Yes (Hospitalization)
  Sender: FDA-Public Use
  Company Number: TR-ELI_LILLY_AND_COMPANY-TR200906003288

PATIENT
  Age: 58 Year
  Sex: Male

DRUGS (1)
  1. HUMULIN N [Suspect]
     Indication: DIABETES MELLITUS
     Dosage: 20 IU, 2/D
     Route: 058
     Dates: start: 19890101

REACTIONS (2)
  - EYE HAEMORRHAGE [None]
  - HALLUCINATION, AUDITORY [None]
